FAERS Safety Report 19904437 (Version 2)
Quarter: 2022Q2

REPORT INFORMATION
  Report Type: Spontaneous
  Country: BR (occurrence: BR)
  Receive Date: 20210930
  Receipt Date: 20220419
  Transmission Date: 20220721
  Serious: Yes (Other)
  Sender: FDA-Public Use
  Company Number: BR-TEVA-2021-BR-1960208

PATIENT
  Age: 48 Year
  Sex: Male

DRUGS (5)
  1. AZILECT [Suspect]
     Active Substance: RASAGILINE MESYLATE
     Indication: Parkinson^s disease
     Dosage: 1 MILLIGRAM DAILY;
     Route: 065
     Dates: start: 2021
  2. BENSERAZIDE\LEVODOPA [Concomitant]
     Active Substance: BENSERAZIDE\LEVODOPA
     Dosage: 1400 MILLIGRAM DAILY;
     Route: 065
  3. ENTACAPONE [Concomitant]
     Active Substance: ENTACAPONE
     Dosage: 400 MILLIGRAM DAILY;
  4. AMANTADINE [Concomitant]
     Active Substance: AMANTADINE
     Dosage: 300 MILLIGRAM DAILY;
  5. ESCITALOPRAM [Concomitant]
     Active Substance: ESCITALOPRAM OXALATE
     Dosage: 10 MILLIGRAM DAILY;

REACTIONS (1)
  - Mania [Recovered/Resolved]
